FAERS Safety Report 5794372-3 (Version None)
Quarter: 2008Q2

REPORT INFORMATION
  Report Type: 
  Country: None (occurrence: None)
  Receive Date: 20080616
  Receipt Date: 20080603
  Transmission Date: 20081010
  Serious: Yes (Death, Life-Threatening, Other)
  Sender: FDA-Public Use
  Company Number: THYM-1000677

PATIENT
  Age: 19 Year
  Sex: Female

DRUGS (1)
  1. THYMOGLOBULIN [Suspect]
     Indication: HEART TRANSPLANT
     Dosage: 40 MG, INTRAVENOUS
     Route: 042
     Dates: start: 20080401

REACTIONS (7)
  - HAEMODYNAMIC INSTABILITY [None]
  - HYPERTENSION [None]
  - HYPERTHERMIA MALIGNANT [None]
  - HYPOTENSION [None]
  - HYPOXIA [None]
  - NERVOUS SYSTEM DISORDER [None]
  - RENAL FAILURE [None]
